FAERS Safety Report 19401858 (Version 7)
Quarter: 2025Q1

REPORT INFORMATION
  Report Type: Report from Study
  Country: CA (occurrence: CA)
  Receive Date: 20210611
  Receipt Date: 20250128
  Transmission Date: 20250409
  Serious: Yes (Hospitalization)
  Sender: ROCHE
  Company Number: CA-ROCHE-2844942

PATIENT
  Age: 76 Year
  Sex: Female

DRUGS (12)
  1. ACTEMRA [Suspect]
     Active Substance: TOCILIZUMAB
     Indication: Rheumatoid arthritis
     Dosage: DRUG DOSE FIRST ADMINISTERED IS UNKNOWN
     Route: 040
     Dates: start: 20140528, end: 2015
  2. ACTEMRA [Suspect]
     Active Substance: TOCILIZUMAB
     Dosage: FIRST PIR RECEIVED
     Route: 040
     Dates: start: 20151106, end: 2016
  3. ACTEMRA [Suspect]
     Active Substance: TOCILIZUMAB
     Route: 040
     Dates: start: 20160204, end: 20160304
  4. ACTEMRA [Suspect]
     Active Substance: TOCILIZUMAB
     Route: 040
     Dates: start: 202103
  5. ACTEMRA ACTPEN [Suspect]
     Active Substance: TOCILIZUMAB
     Indication: Rheumatoid arthritis
     Route: 058
     Dates: start: 202103, end: 2023
  6. ACTEMRA ACTPEN [Suspect]
     Active Substance: TOCILIZUMAB
     Route: 058
     Dates: start: 20200601, end: 2023
  7. AMITRIPTYLINE [Concomitant]
     Active Substance: AMITRIPTYLINE
  8. CELEBREX [Concomitant]
     Active Substance: CELECOXIB
  9. DESMOPRESSIN [Concomitant]
     Active Substance: DESMOPRESSIN
  10. FOLIC ACID [Concomitant]
     Active Substance: FOLIC ACID
  11. METHOTREXATE [Concomitant]
     Active Substance: METHOTREXATE
  12. RESTASIS [Concomitant]
     Active Substance: CYCLOSPORINE

REACTIONS (4)
  - Cystitis [Unknown]
  - Device issue [Unknown]
  - Ill-defined disorder [Unknown]
  - Drug ineffective [Unknown]
